FAERS Safety Report 19761572 (Version 1)
Quarter: 2021Q3

REPORT INFORMATION
  Report Type: Spontaneous
  Country: GB (occurrence: GB)
  Receive Date: 20210828
  Receipt Date: 20210828
  Transmission Date: 20211014
  Serious: Yes (Life-Threatening, Disabling, Other)
  Sender: FDA-Public Use
  Company Number: None

PATIENT
  Age: 13 Year
  Sex: Male
  Weight: 4.68 kg

DRUGS (7)
  1. HYDROCORTISONE. [Suspect]
     Active Substance: HYDROCORTISONE
     Indication: ECZEMA
     Route: 061
     Dates: start: 20010202, end: 20150408
  2. EUMOVATE [Suspect]
     Active Substance: CLOBETASONE BUTYRATE
  3. MAGNESIUM [Concomitant]
     Active Substance: MAGNESIUM
  4. SALBUTAMOL [Concomitant]
     Active Substance: ALBUTEROL
  5. PREDNISOLONE. [Suspect]
     Active Substance: PREDNISOLONE
     Indication: ASTHMA
     Dosage: ?          QUANTITY:1 TABLET(S);?
     Route: 048
  6. PREDNISOLONE. [Suspect]
     Active Substance: PREDNISOLONE
     Indication: ECZEMA
     Dosage: ?          QUANTITY:1 TABLET(S);?
     Route: 048
  7. ZINC. [Concomitant]
     Active Substance: ZINC

REACTIONS (12)
  - Skin erosion [None]
  - Skin infection [None]
  - Pain [None]
  - Application site erythema [None]
  - Educational problem [None]
  - Multiple allergies [None]
  - Skin weeping [None]
  - Scab [None]
  - Condition aggravated [None]
  - Steroid withdrawal syndrome [None]
  - Impaired quality of life [None]
  - Mental status changes [None]

NARRATIVE: CASE EVENT DATE: 20150404
